FAERS Safety Report 7827356-1 (Version None)
Quarter: 2011Q4

REPORT INFORMATION
  Report Type: 
  Country: None (occurrence: None)
  Receive Date: 20111019
  Receipt Date: 20111019
  Transmission Date: 20120403
  Serious: Yes (Hospitalization)
  Sender: FDA-Public Use
  Company Number: None

PATIENT
  Sex: Female
  Weight: 72.6 kg

DRUGS (8)
  1. NEUPOGEN [Concomitant]
  2. PREDNISONE [Suspect]
     Dosage: 77 MG
  3. DOXORUBICIN HCL [Suspect]
     Dosage: 63 MG
  4. BLEOMYCIN SULFATE [Suspect]
     Dosage: 18 MG
  5. ETOPOSIDE [Suspect]
     Dosage: 1080 MG
  6. PROCARBAZINE HYDROCHLORIDE [Suspect]
     Dosage: 1400 MG
  7. VINCRISTINE SULFATE [Suspect]
     Dosage: 2 MG
  8. CYCLOPHOSPHAMIDE [Suspect]
     Dosage: 2250 MG

REACTIONS (4)
  - COUGH [None]
  - FEBRILE NEUTROPENIA [None]
  - HEADACHE [None]
  - DIZZINESS [None]
